FAERS Safety Report 7956357-8 (Version None)
Quarter: 2011Q4

REPORT INFORMATION
  Report Type: 
  Country: None (occurrence: None)
  Receive Date: 20111205
  Receipt Date: 20111130
  Transmission Date: 20120403
  Serious: Yes (Other)
  Sender: FDA-Public Use
  Company Number: FI-PFIZER INC-2011249436

PATIENT
  Age: 34 Year
  Sex: Female

DRUGS (6)
  1. LYRICA [Suspect]
     Dosage: 1200 MG, 1X/DAY
     Dates: start: 20110101, end: 20110101
  2. LYRICA [Suspect]
     Dosage: 300 MG, UNK
     Dates: start: 20110801, end: 20110101
  3. LYRICA [Suspect]
     Dosage: 450 MG TO 675 MG DAILY, AS A SINGLE DOSE
     Dates: end: 20110801
  4. ZOLPIDEM [Concomitant]
     Dosage: 10 MG, 1X/DAY
     Dates: end: 20110101
  5. LYRICA [Suspect]
     Dosage: AD 1000 MG DAILY
     Dates: start: 20110101, end: 20110101
  6. TIZANIDINE HCL [Concomitant]
     Indication: MUSCLE RELAXANT THERAPY
     Dosage: 3 TIMES A DAY
     Dates: end: 20110101

REACTIONS (4)
  - DRUG WITHDRAWAL SYNDROME [None]
  - DRUG DEPENDENCE [None]
  - ANXIETY [None]
  - TREMOR [None]
